FAERS Safety Report 21519933 (Version 1)
Quarter: 2022Q4

REPORT INFORMATION
  Report Type: Spontaneous
  Country: JP (occurrence: JP)
  Receive Date: 20221028
  Receipt Date: 20221028
  Transmission Date: 20230113
  Serious: Yes (Other)
  Sender: FDA-Public Use
  Company Number: JP-JNJFOC-20220839837

PATIENT
  Age: 73 Year
  Sex: Male

DRUGS (1)
  1. ERLEADA [Suspect]
     Active Substance: APALUTAMIDE
     Indication: Prostate cancer
     Dosage: DOSE UNKNOWN
     Route: 048
     Dates: start: 20220720, end: 20220817

REACTIONS (4)
  - Lymphoma [Unknown]
  - Blood pressure increased [Unknown]
  - Palpitations [Unknown]
  - Swelling [Unknown]

NARRATIVE: CASE EVENT DATE: 20220101
